FAERS Safety Report 4492476-9 (Version None)
Quarter: 2004Q4

REPORT INFORMATION
  Report Type: 
  Country: None (occurrence: None)
  Receive Date: 20041103
  Receipt Date: 20041103
  Transmission Date: 20050328
  Serious: Yes (Disabling)
  Sender: FDA-Public Use
  Company Number: None

PATIENT
  Age: 42 Year
  Sex: Male
  Weight: 98.5 kg

DRUGS (1)
  1. IRESSA [Suspect]
     Indication: CARCINOMA
     Dosage: 250 MG DAILY ORAL
     Route: 048
     Dates: start: 20040815, end: 20040827

REACTIONS (5)
  - ASCITES [None]
  - FEELING ABNORMAL [None]
  - HAEMODIALYSIS [None]
  - HEPATIC FAILURE [None]
  - RENAL FAILURE [None]
